FAERS Safety Report 10186629 (Version 2)
Quarter: 2014Q2

REPORT INFORMATION
  Report Type: Spontaneous
  Country: US (occurrence: US)
  Receive Date: 20140521
  Receipt Date: 20140605
  Transmission Date: 20141212
  Serious: Yes (Other)
  Sender: FDA-Public Use
  Company Number: US-BAXTER-2014BAX024108

PATIENT
  Age: 14 Year
  Sex: Male
  Weight: 70.37 kg

DRUGS (3)
  1. GAMMAGARD S/D [Suspect]
     Indication: HYPER IGM SYNDROME
     Dosage: ^5 INJECTION SITES^
     Route: 058
     Dates: start: 20000603
  2. GAMMAGARD S/D [Suspect]
     Indication: OFF LABEL USE
     Dosage: ^5 INJECTION SITES^
     Route: 058
     Dates: start: 20130710
  3. GAMMAGARD S/D [Suspect]
     Indication: X-LINKED CHROMOSOMAL DISORDER

REACTIONS (5)
  - Ear infection [Recovered/Resolved]
  - Infusion site extravasation [Recovered/Resolved]
  - Device dislocation [Recovered/Resolved]
  - Drug level decreased [Recovered/Resolved]
  - Otitis externa [Recovered/Resolved]
